FAERS Safety Report 7724386-5 (Version None)
Quarter: 2011Q3

REPORT INFORMATION
  Report Type: 
  Country: None (occurrence: None)
  Receive Date: 20110901
  Receipt Date: 20110823
  Transmission Date: 20111222
  Serious: Yes (Hospitalization)
  Sender: FDA-Public Use
  Company Number: US-ASTRAZENECA-2011SE39664

PATIENT
  Age: 76 Year
  Sex: Male
  Weight: 81.6 kg

DRUGS (5)
  1. ZETIA [Concomitant]
     Dates: end: 20110701
  2. BETHANECHOL [Concomitant]
     Route: 048
     Dates: start: 20080728
  3. VITAMIN TAB [Concomitant]
  4. CRESTOR [Suspect]
     Route: 048
     Dates: start: 20080101, end: 20110701
  5. ASPIRIN [Concomitant]
     Dosage: 81 MG EVERY MORNING
     Route: 048

REACTIONS (6)
  - ADVERSE DRUG REACTION [None]
  - MUSCULAR WEAKNESS [None]
  - GAIT DISTURBANCE [None]
  - PAIN IN EXTREMITY [None]
  - DRUG INTOLERANCE [None]
  - MYOPATHY [None]
